FAERS Safety Report 9295721 (Version 3)
Quarter: 2013Q2

REPORT INFORMATION
  Report Type: Spontaneous
  Country: FR (occurrence: FR)
  Receive Date: 20130517
  Receipt Date: 20130603
  Transmission Date: 20140414
  Serious: Yes (Other)
  Sender: FDA-Public Use
  Company Number: FR-PFIZER INC-2013141187

PATIENT
  Age: 15 Year
  Sex: Female
  Weight: 69.57 kg

DRUGS (4)
  1. PARACETAMOL [Suspect]
     Dosage: 8 G, OR 115MG/KG
  2. IBUPROFEN [Suspect]
     Dosage: 2 G, UNK
  3. NAPROXEN [Suspect]
     Dosage: 4.4 G, UNK
  4. PSEUDOEPHEDRINE [Suspect]
     Dosage: 300 MG, UNK

REACTIONS (4)
  - Intentional overdose [Unknown]
  - Renal failure acute [Recovered/Resolved]
  - Toxicity to various agents [None]
  - Renal tubular necrosis [None]
